FAERS Safety Report 5503171-9 (Version None)
Quarter: 2007Q4

REPORT INFORMATION
  Report Type: 
  Country: None (occurrence: None)
  Receive Date: 20071031
  Receipt Date: 20071016
  Transmission Date: 20080405
  Serious: Yes (Hospitalization)
  Sender: FDA-Public Use
  Company Number: EG-ROCHE-528166

PATIENT
  Age: 23 Year
  Sex: Male

DRUGS (6)
  1. MYCOPHENOLATE MOFETIL [Suspect]
     Indication: IMMUNOSUPPRESSION
     Route: 065
  2. AZATHIOPRINE [Suspect]
     Indication: IMMUNOSUPPRESSION
     Route: 065
  3. STEROID NOS [Suspect]
     Indication: IMMUNOSUPPRESSION
     Route: 065
  4. STEROID NOS [Suspect]
     Dosage: TAPERED DOSE IN RESPONSE TO EVENTS
     Route: 065
  5. CYCLOSPORINE [Suspect]
     Indication: IMMUNOSUPPRESSION
     Route: 065
  6. BASILIXIMAB [Suspect]
     Indication: IMMUNOSUPPRESSION
     Dosage: INDUCTION ONLY
     Route: 065

REACTIONS (5)
  - GASTROINTESTINAL HAEMORRHAGE [None]
  - JAUNDICE [None]
  - LYMPHADENOPATHY [None]
  - SHOCK [None]
  - SKIN LESION [None]
